FAERS Safety Report 21967771 (Version 1)
Quarter: 2023Q1

REPORT INFORMATION
  Report Type: Spontaneous
  Country: MX (occurrence: MX)
  Receive Date: 20230208
  Receipt Date: 20230208
  Transmission Date: 20230418
  Serious: Yes (Hospitalization, Other)
  Sender: FDA-Public Use
  Company Number: MX-002147023-NVSC2023MX015102

PATIENT
  Age: 2 Year
  Sex: Male
  Weight: 16 kg

DRUGS (7)
  1. SABRIL [Suspect]
     Active Substance: VIGABATRIN
     Indication: Infantile spasms
     Dosage: 1 DOSAGE FORM, QD
     Route: 048
     Dates: start: 202107, end: 20230103
  2. SABRIL [Suspect]
     Active Substance: VIGABATRIN
     Dosage: 1 DOSAGE FORM, QD
     Route: 048
     Dates: start: 20230124
  3. TRILEPTAL [Suspect]
     Active Substance: OXCARBAZEPINE
     Indication: Seizure
     Dosage: 1 DOSAGE FORM, QD (DAILY)
     Route: 048
     Dates: start: 202108
  4. CLOBAZAM [Concomitant]
     Active Substance: CLOBAZAM
     Indication: Seizure
     Dosage: 0.5 DOSAGE FORM (UNKNOWN STRENGHT) (EVERY 12HOURS FOR 10 DAYS)
     Route: 048
     Dates: start: 20230124
  5. LEVETIRACETAM [Concomitant]
     Active Substance: LEVETIRACETAM
     Indication: Seizure
     Dosage: UNK
     Route: 048
     Dates: start: 202107
  6. VALPROATE MAGNESIUM [Concomitant]
     Active Substance: VALPROATE MAGNESIUM
     Indication: Product used for unknown indication
     Dosage: UNK
     Route: 065
  7. PHENOBARBITAL [Concomitant]
     Active Substance: PHENOBARBITAL
     Indication: Product used for unknown indication
     Dosage: UNK
     Route: 065

REACTIONS (11)
  - Pneumonia [Recovered/Resolved]
  - Seizure [Recovered/Resolved]
  - Syncope [Unknown]
  - Asthenia [Unknown]
  - Unevaluable event [Unknown]
  - Ammonia increased [Unknown]
  - Influenza [Recovered/Resolved]
  - Somnolence [Unknown]
  - Cough [Recovering/Resolving]
  - Productive cough [Recovering/Resolving]
  - Product use issue [Unknown]

NARRATIVE: CASE EVENT DATE: 20210801
